FAERS Safety Report 20802967 (Version 1)
Quarter: 2022Q2

REPORT INFORMATION
  Report Type: Spontaneous
  Country: US (occurrence: US)
  Receive Date: 20220509
  Receipt Date: 20220509
  Transmission Date: 20220720
  Serious: No
  Sender: FDA-Public Use
  Company Number: US-BAUSCH-BL-2022-010785

PATIENT
  Age: 59 Year
  Sex: Male
  Weight: 65.830 kg

DRUGS (1)
  1. OPCON-A [Suspect]
     Active Substance: NAPHAZOLINE HYDROCHLORIDE\PHENIRAMINE MALEATE
     Indication: Ocular hyperaemia
     Dosage: AS NEEDED
     Route: 047

REACTIONS (2)
  - Instillation site erythema [Unknown]
  - Condition aggravated [Unknown]
